FAERS Safety Report 18180889 (Version 1)
Quarter: 2020Q3

REPORT INFORMATION
  Report Type: Spontaneous
  Country: CN (occurrence: CN)
  Receive Date: 20200821
  Receipt Date: 20200821
  Transmission Date: 20201103
  Serious: Yes (Other)
  Sender: FDA-Public Use
  Company Number: CN-009507513-2008CHN009523

PATIENT
  Age: 66 Year
  Sex: Female
  Weight: 46.5 kg

DRUGS (2)
  1. INVANZ [Suspect]
     Active Substance: ERTAPENEM SODIUM
     Indication: FEBRILE INFECTION
     Dosage: 1 GRAM, QD
     Route: 041
     Dates: start: 20200807, end: 20200808
  2. INVANZ [Suspect]
     Active Substance: ERTAPENEM SODIUM
     Indication: ANTI-INFECTIVE THERAPY

REACTIONS (5)
  - Pyrexia [Unknown]
  - Chest discomfort [Recovered/Resolved]
  - Chills [Recovered/Resolved]
  - Dizziness [Unknown]
  - Temperature intolerance [Recovered/Resolved]

NARRATIVE: CASE EVENT DATE: 20200807
